FAERS Safety Report 25234461 (Version 1)
Quarter: 2025Q2

REPORT INFORMATION
  Report Type: Report from Study
  Country: US (occurrence: US)
  Receive Date: 20250424
  Receipt Date: 20250424
  Transmission Date: 20250717
  Serious: Yes (Other)
  Sender: ACADIA PHARMACEUTICALS
  Company Number: US-ACADIA PHARMACEUTICALS INC.-ACA-2025-PIM-004699

PATIENT
  Sex: Male

DRUGS (7)
  1. NUPLAZID [Suspect]
     Active Substance: PIMAVANSERIN TARTRATE
     Indication: Parkinson^s disease
     Dosage: 34 MILLIGRAM, QD
     Route: 048
  2. SOLIFENACIN [Concomitant]
     Active Substance: SOLIFENACIN
  3. ALBUTEROL [Concomitant]
     Active Substance: ALBUTEROL
  4. LISINOPRIL [Concomitant]
     Active Substance: LISINOPRIL
  5. QUETIAPINE [Concomitant]
     Active Substance: QUETIAPINE
  6. IBUPROFEN [Concomitant]
     Active Substance: IBUPROFEN
  7. CARBIDOPA [Concomitant]
     Active Substance: CARBIDOPA

REACTIONS (4)
  - Hallucination [Unknown]
  - Psychotic disorder [Unknown]
  - Delusion [Unknown]
  - Product use issue [Unknown]
